FAERS Safety Report 15608462 (Version 2)
Quarter: 2019Q2

REPORT INFORMATION
  Report Type: Spontaneous
  Country: US (occurrence: US)
  Receive Date: 20181112
  Receipt Date: 20190401
  Transmission Date: 20190711
  Serious: Yes (Other)
  Sender: FDA-Public Use
  Company Number: US-BAUSCH-BL-2018-030100

PATIENT
  Sex: Male

DRUGS (2)
  1. EFUDEX [Suspect]
     Active Substance: FLUOROURACIL
     Indication: ACTINIC KERATOSIS
     Dosage: USING SMALL AMOUNT OF EFUDEX CREAM 5 PERCENT ON THE FACE, SCALP, AND ARMS FOR THREE WEEKS
     Route: 061
     Dates: start: 201809, end: 201809
  2. CIALIS [Suspect]
     Active Substance: TADALAFIL
     Indication: PRODUCT USED FOR UNKNOWN INDICATION
     Dosage: AS NEEDED
     Route: 048

REACTIONS (5)
  - Pityriasis rubra pilaris [Unknown]
  - Palatal disorder [Unknown]
  - Condition aggravated [Unknown]
  - Oropharyngeal pain [Unknown]
  - Tongue disorder [Unknown]

NARRATIVE: CASE EVENT DATE: 2018
